FAERS Safety Report 23764830 (Version 1)
Quarter: 2024Q2

REPORT INFORMATION
  Report Type: Spontaneous
  Country: CA (occurrence: CA)
  Receive Date: 20240420
  Receipt Date: 20240420
  Transmission Date: 20240716
  Serious: Yes (Hospitalization)
  Sender: FDA-Public Use
  Company Number: CA-TEVA-VS-3183318

PATIENT
  Age: 18 Year
  Sex: Female
  Weight: 72 kg

DRUGS (16)
  1. ETOPOSIDE [Suspect]
     Active Substance: ETOPOSIDE
     Indication: Acute lymphocytic leukaemia
     Dosage: DOSE FORM: NOT SPECIFIED
     Route: 065
  2. DEXAMETHASONE [Concomitant]
     Active Substance: DEXAMETHASONE
     Dosage: DEXAMETHASONE OPHTHALMIC/ DOSGE FORM:DROPS OPHTHALMIC
  3. DIMENHYDRINATE [Concomitant]
     Active Substance: DIMENHYDRINATE
     Dosage: DOSE FORM: NOT SPECIFIED
  4. DIPHENHYDRAMINE [Concomitant]
     Active Substance: DIPHENHYDRAMINE
     Dosage: DOSE FORM: NOT SPECIFIED
  5. FAMOTIDINE [Concomitant]
     Active Substance: FAMOTIDINE
  6. FILGRASTIM [Concomitant]
     Active Substance: FILGRASTIM
  7. GRANISETRON [Concomitant]
     Active Substance: GRANISETRON
     Dosage: DOSE FORM: NOT SPECIFIED
  8. ASPARAGINASE [Suspect]
     Active Substance: ASPARAGINASE
     Indication: Acute lymphocytic leukaemia
     Dosage: DOSAGE FORM: POWDER FOR SOLUTION INTRAMUSCULAR
     Route: 065
  9. LANSOPRAZOLE [Concomitant]
     Active Substance: LANSOPRAZOLE
     Dosage: DOSAGE FORM: CAPSULE, DELAYED RELEASE
  10. LORAZEPAM [Concomitant]
     Active Substance: LORAZEPAM
     Dosage: DOSE FORM: NOT SPECIFIED
     Route: 065
  11. PREGABALIN [Concomitant]
     Active Substance: PREGABALIN
  12. QUETIAPINE [Concomitant]
     Active Substance: QUETIAPINE
  13. SULFAMETHOXAZOLE\TRIMETHOPRIM [Concomitant]
     Active Substance: SULFAMETHOXAZOLE\TRIMETHOPRIM
     Dosage: DOSE FORM: NOT SPECIFIED
  14. CYTARABINE [Suspect]
     Active Substance: CYTARABINE
     Indication: Acute lymphocytic leukaemia
     Dosage: CYTARABINE INJECTION
     Route: 065
  15. METHOTREXATE SODIUM [Suspect]
     Active Substance: METHOTREXATE SODIUM
     Indication: Acute lymphocytic leukaemia
     Route: 065
  16. DEXAMETHASONE [Suspect]
     Active Substance: DEXAMETHASONE
     Indication: Acute lymphocytic leukaemia
     Route: 065

REACTIONS (2)
  - Febrile neutropenia [Recovered/Resolved]
  - Pharyngeal inflammation [Recovered/Resolved]
